FAERS Safety Report 12513346 (Version 1)
Quarter: 2016Q2

REPORT INFORMATION
  Report Type: Spontaneous
  Country: US (occurrence: None)
  Receive Date: 20160629
  Receipt Date: 20160629
  Transmission Date: 20160815
  Serious: No
  Sender: FDA-Public Use
  Company Number: None

PATIENT
  Age: 66 Year
  Sex: Female
  Weight: 47.63 kg

DRUGS (2)
  1. HYQVIA [Suspect]
     Active Substance: HUMAN IMMUNOGLOBULIN G\HYALURONIDASE RECOMBINANT HUMAN
     Indication: IMMUNODEFICIENCY COMMON VARIABLE
     Dosage: 15 G WK 4 OF RAMP-UP SUBCUTANEOUS?
     Route: 058
     Dates: start: 20160516, end: 20160613
  2. GLASSIA [Concomitant]
     Active Substance: .ALPHA.1-PROTEINASE INHIBITOR HUMAN

REACTIONS (5)
  - Muscle spasms [None]
  - Paraesthesia [None]
  - Burning sensation [None]
  - Facial pain [None]
  - Swelling face [None]

NARRATIVE: CASE EVENT DATE: 20160614
